FAERS Safety Report 25591207 (Version 1)
Quarter: 2025Q3

REPORT INFORMATION
  Report Type: Spontaneous
  Country: CN (occurrence: CN)
  Receive Date: 20250722
  Receipt Date: 20250722
  Transmission Date: 20251021
  Serious: Yes (Life-Threatening, Hospitalization)
  Sender: Haleon PLC
  Company Number: CN-HALEON-2253317

PATIENT
  Age: 27 Year
  Sex: Female
  Weight: 55 kg

DRUGS (3)
  1. IBUPROFEN [Suspect]
     Active Substance: IBUPROFEN
     Indication: Intentional self-injury
     Route: 048
     Dates: start: 20250331, end: 20250331
  2. AMLODIPINE BESYLATE [Suspect]
     Active Substance: AMLODIPINE BESYLATE
     Indication: Intentional self-injury
     Route: 048
     Dates: start: 20250331, end: 20250331
  3. CEFUROXIME AXETIL [Suspect]
     Active Substance: CEFUROXIME AXETIL
     Indication: Intentional self-injury
     Route: 048
     Dates: start: 20250331, end: 20250331

REACTIONS (14)
  - Somnolence [Recovering/Resolving]
  - Toxicity to various agents [Unknown]
  - Illness [Recovering/Resolving]
  - Blood pressure decreased [Recovering/Resolving]
  - Chest discomfort [Recovering/Resolving]
  - Overdose [Unknown]
  - Irritability [Recovering/Resolving]
  - Malaise [Recovering/Resolving]
  - Dry mouth [Recovering/Resolving]
  - Nausea [Recovering/Resolving]
  - Retching [Recovering/Resolving]
  - Crying [Recovering/Resolving]
  - Initial insomnia [Recovering/Resolving]
  - Vomiting [Recovering/Resolving]

NARRATIVE: CASE EVENT DATE: 20250331
